FAERS Safety Report 15553852 (Version 1)
Quarter: 2018Q4

REPORT INFORMATION
  Report Type: Spontaneous
  Country: GR (occurrence: GR)
  Receive Date: 20181026
  Receipt Date: 20181026
  Transmission Date: 20190205
  Serious: Yes (Death, Life-Threatening, Hospitalization, Other)
  Sender: FDA-Public Use
  Company Number: GR-MACLEODS PHARMACEUTICALS US LTD-MAC2018018065

PATIENT

DRUGS (9)
  1. ASPIRIN. [Suspect]
     Active Substance: ASPIRIN
     Indication: CORONARY ARTERY DISEASE
     Dosage: UNK
     Route: 065
  2. ATORVASTATIN [Suspect]
     Active Substance: ATORVASTATIN
     Indication: CORONARY ARTERY DISEASE
     Dosage: UNK
     Route: 065
  3. ISOSORBIDE MONONITRATE. [Suspect]
     Active Substance: ISOSORBIDE MONONITRATE
     Indication: CORONARY ARTERY DISEASE
     Dosage: UNK
     Route: 065
  4. CLOPIDOGREL [Suspect]
     Active Substance: CLOPIDOGREL BISULFATE
     Indication: CORONARY ARTERY DISEASE
     Dosage: UNK
     Route: 065
  5. BIVALIRUDIN. [Suspect]
     Active Substance: BIVALIRUDIN
     Dosage: 1.75 MILLIGRAM/KILOGRAM,EVERY HOUR, MAINTENANCE INFUSION, INFUSION
     Route: 065
  6. BIVALIRUDIN. [Suspect]
     Active Substance: BIVALIRUDIN
     Indication: PRODUCT USED FOR UNKNOWN INDICATION
     Dosage: 75 MILLIGRAM/KILOGRAM, BOLUS, INJECTION
     Route: 042
  7. HEPARIN [Suspect]
     Active Substance: HEPARIN SODIUM
     Indication: PRODUCT USED FOR UNKNOWN INDICATION
     Dosage: 50 INTERNATIONAL UNIT
     Route: 013
  8. VALSARTAN. [Suspect]
     Active Substance: VALSARTAN
     Indication: CORONARY ARTERY DISEASE
     Dosage: UNK
     Route: 065
  9. METOPROLOL. [Suspect]
     Active Substance: METOPROLOL
     Indication: CORONARY ARTERY DISEASE
     Dosage: UNK
     Route: 065

REACTIONS (4)
  - Kounis syndrome [Fatal]
  - Ventricular fibrillation [Fatal]
  - Cardiac arrest [Fatal]
  - Vascular stent thrombosis [Unknown]
